FAERS Safety Report 12074958 (Version 1)
Quarter: 2016Q1

REPORT INFORMATION
  Report Type: Report from Study
  Country: FR (occurrence: FR)
  Receive Date: 20160212
  Receipt Date: 20160212
  Transmission Date: 20160526
  Serious: Yes (Other)
  Sender: FDA-Public Use
  Company Number: FR-GLAXOSMITHKLINE-FR2016GSK019078

PATIENT
  Sex: Male

DRUGS (1)
  1. SALBUTAMOL SULPHATE [Suspect]
     Active Substance: ALBUTEROL SULFATE
     Indication: NEUROMYOPATHY
     Route: 048

REACTIONS (6)
  - Cerebrovascular accident [Unknown]
  - Fatigue [Unknown]
  - Product use issue [Unknown]
  - Skin exfoliation [Unknown]
  - Sleep disorder [Unknown]
  - Alopecia [Unknown]
